FAERS Safety Report 24126428 (Version 1)
Quarter: 2024Q3

REPORT INFORMATION
  Report Type: Spontaneous
  Country: JP (occurrence: JP)
  Receive Date: 20240723
  Receipt Date: 20240723
  Transmission Date: 20241017
  Serious: Yes (Other)
  Sender: SANDOZ
  Company Number: JP-SANDOZ-SDZ2024JP064416

PATIENT
  Age: 62 Year

DRUGS (2)
  1. ZOLPIDEM TARTRATE [Suspect]
     Active Substance: ZOLPIDEM TARTRATE
     Indication: Dystonia
     Dosage: 5 MG, QD
     Route: 065
  2. ZOLPIDEM TARTRATE [Suspect]
     Active Substance: ZOLPIDEM TARTRATE
     Dosage: UNK UNK, QD
     Route: 065

REACTIONS (5)
  - Hand fracture [Unknown]
  - Road traffic accident [Unknown]
  - Somnolence [Unknown]
  - Amnesia [Unknown]
  - Product use in unapproved indication [Unknown]
